FAERS Safety Report 17347471 (Version 1)
Quarter: 2020Q1

REPORT INFORMATION
  Report Type: Report from Study
  Country: US (occurrence: US)
  Receive Date: 20200129
  Receipt Date: 20200129
  Transmission Date: 20200409
  Serious: No
  Sender: FDA-Public Use
  Company Number: US-EXELIXIS-CABO-19023340

PATIENT
  Age: 79 Year
  Sex: Male

DRUGS (2)
  1. CABOMETYX [Suspect]
     Active Substance: CABOZANTINIB S-MALATE
     Indication: THYROID DISORDER
     Dosage: 40 MG (3 TIMES A WEEK, EXCLUDING SUNDAY DOSE)
  2. CABOMETYX [Suspect]
     Active Substance: CABOZANTINIB S-MALATE
     Indication: RENAL CANCER
     Dosage: 40 MG Q M/W/F IN AM WITHOUT FOOD
     Dates: start: 20190802

REACTIONS (9)
  - Fatigue [Recovered/Resolved]
  - Protein total decreased [Unknown]
  - Decreased appetite [Recovering/Resolving]
  - Diarrhoea [Recovered/Resolved]
  - Drug intolerance [Unknown]
  - Blood pressure increased [Not Recovered/Not Resolved]
  - Blood sodium decreased [Recovering/Resolving]
  - Blood pressure fluctuation [Unknown]
  - Constipation [Unknown]

NARRATIVE: CASE EVENT DATE: 20190920
